FAERS Safety Report 15281606 (Version 2)
Quarter: 2019Q4

REPORT INFORMATION
  Report Type: Spontaneous
  Country: JP (occurrence: JP)
  Receive Date: 20180815
  Receipt Date: 20191205
  Transmission Date: 20200122
  Serious: Yes (Hospitalization)
  Sender: FDA-Public Use
  Company Number: JP-MALLINCKRODT-T201803449

PATIENT
  Age: 30 Year
  Sex: Male
  Weight: 73 kg

DRUGS (11)
  1. OFIRMEV [Suspect]
     Active Substance: ACETAMINOPHEN
     Indication: PAIN
     Dosage: 1000 MG
     Route: 042
     Dates: start: 20180726, end: 20180726
  2. SUPRANE [Concomitant]
     Active Substance: DESFLURANE
     Indication: INTERVERTEBRAL DISC OPERATION
     Dosage: UNK
     Route: 055
     Dates: start: 20180726, end: 20180726
  3. GASTER [Concomitant]
     Active Substance: FAMOTIDINE
     Indication: PRODUCT USED FOR UNKNOWN INDICATION
     Dosage: UNK
     Route: 065
     Dates: start: 20180726, end: 20180726
  4. CEFAZOLIN SODIUM. [Concomitant]
     Active Substance: CEFAZOLIN SODIUM
     Indication: PRODUCT USED FOR UNKNOWN INDICATION
     Dosage: UNK
     Route: 065
     Dates: start: 20180726, end: 20180726
  5. PREGABALIN. [Concomitant]
     Active Substance: PREGABALIN
     Indication: SCIATICA
     Dosage: UNK
     Route: 048
  6. ROCURONIUM BROMIDE. [Concomitant]
     Active Substance: ROCURONIUM BROMIDE
     Indication: INTERVERTEBRAL DISC OPERATION
     Dosage: UNK
     Route: 042
     Dates: start: 20180726, end: 20180726
  7. OFIRMEV [Suspect]
     Active Substance: ACETAMINOPHEN
     Indication: INTERVERTEBRAL DISC OPERATION
  8. FENTANYL CITRATE. [Concomitant]
     Active Substance: FENTANYL CITRATE
     Indication: INTERVERTEBRAL DISC OPERATION
     Dosage: UNK
     Route: 065
     Dates: start: 20180726, end: 20180726
  9. LOXOPROFEN SODIUM HYDRATE [Concomitant]
     Active Substance: LOXOPROFEN SODIUM DIHYDRATE
     Indication: SCIATICA
     Route: 048
  10. REMIFENTANIL HYDROCHLORIDE. [Concomitant]
     Active Substance: REMIFENTANIL HYDROCHLORIDE
     Indication: INTERVERTEBRAL DISC OPERATION
     Dosage: UNK
     Route: 041
     Dates: start: 20180726, end: 20180726
  11. PROPOFOL. [Concomitant]
     Active Substance: PROPOFOL
     Indication: INTERVERTEBRAL DISC OPERATION
     Dosage: UNK
     Route: 042
     Dates: start: 20180726, end: 20180726

REACTIONS (5)
  - Generalised oedema [Recovered/Resolved]
  - Anaphylactic shock [Recovered/Resolved]
  - Rash [Recovered/Resolved]
  - Flushing [Recovered/Resolved]
  - Blood pressure decreased [Recovered/Resolved]

NARRATIVE: CASE EVENT DATE: 20180726
